FAERS Safety Report 15890213 (Version 2)
Quarter: 2019Q1

REPORT INFORMATION
  Report Type: Report from Study
  Country: None (occurrence: US)
  Receive Date: 20190130
  Receipt Date: 20190311
  Transmission Date: 20190417
  Serious: Yes (Hospitalization)
  Sender: FDA-Public Use
  Company Number: US-ABBVIE-19K-163-2639172-00

PATIENT
  Age: 71 Year
  Sex: Female
  Weight: 56.3 kg

DRUGS (4)
  1. GABAPENTIN. [Concomitant]
     Active Substance: GABAPENTIN
     Indication: NEUROPATHY PERIPHERAL
  2. ZOLDEM [Concomitant]
     Active Substance: ZOLPIDEM TARTRATE
     Indication: SLEEP DISORDER
  3. HUMIRA [Suspect]
     Active Substance: ADALIMUMAB
     Indication: PSORIATIC ARTHROPATHY
  4. HUMIRA [Suspect]
     Active Substance: ADALIMUMAB
     Indication: CROHN^S DISEASE
     Route: 058
     Dates: start: 20181030

REACTIONS (5)
  - Vomiting [Unknown]
  - Back pain [Unknown]
  - Gastrointestinal ulcer [Unknown]
  - Chest pain [Unknown]
  - Vomiting [Unknown]

NARRATIVE: CASE EVENT DATE: 20190120
